FAERS Safety Report 7743009-2 (Version None)
Quarter: 2011Q3

REPORT INFORMATION
  Report Type: 
  Country: None (occurrence: None)
  Receive Date: 20110912
  Receipt Date: 20110902
  Transmission Date: 20111222
  Serious: Yes (Other)
  Sender: FDA-Public Use
  Company Number: BR-ROCHE-774476

PATIENT
  Sex: Female
  Weight: 96 kg

DRUGS (7)
  1. CYCLOPHOSPHAMIDE [Concomitant]
  2. TAXOL [Suspect]
     Indication: BREAST CANCER
     Route: 065
  3. HERCEPTIN [Suspect]
     Indication: BREAST CANCER
     Dosage: 1ST DAY
     Route: 042
     Dates: start: 20090608
  4. HERCEPTIN [Suspect]
     Route: 042
     Dates: start: 20090609, end: 20100601
  5. HERCEPTIN [Suspect]
     Route: 042
  6. DOXORUBICIN HCL [Concomitant]
  7. ANTHRACYCLINE NOS [Suspect]
     Indication: BREAST CANCER
     Route: 065

REACTIONS (4)
  - INTERSTITIAL LUNG DISEASE [None]
  - PATHOLOGICAL FRACTURE [None]
  - CARDIOTOXICITY [None]
  - BREAST DISORDER [None]
